FAERS Safety Report 6127259-7 (Version None)
Quarter: 2009Q1

REPORT INFORMATION
  Report Type: 
  Country: None (occurrence: None)
  Receive Date: 20090319
  Receipt Date: 20090305
  Transmission Date: 20090719
  Serious: Yes (Hospitalization)
  Sender: FDA-Public Use
  Company Number: 02100-JPN-07-0556

PATIENT
  Age: 50 Year
  Sex: Female

DRUGS (1)
  1. PLETAL [Suspect]
     Indication: ISCHAEMIC STROKE
     Dosage: 100 MG, BID
     Route: 048
     Dates: start: 20070430

REACTIONS (1)
  - CORONARY ARTERY DISEASE [None]
